FAERS Safety Report 5316518-3 (Version None)
Quarter: 2007Q2

REPORT INFORMATION
  Report Type: 
  Country: None (occurrence: None)
  Receive Date: 20070504
  Receipt Date: 20070425
  Transmission Date: 20071010
  Serious: Yes (Hospitalization)
  Sender: FDA-Public Use
  Company Number: FR-ABBOTT-07P-056-0366150-00

PATIENT
  Age: 41 Year
  Sex: Male

DRUGS (5)
  1. DEPAKENE [Suspect]
     Indication: MYOCLONIC EPILEPSY
     Route: 048
  2. DEPAKENE [Suspect]
     Indication: HEAD INJURY
  3. CLONAZEPAM [Suspect]
     Indication: DRUG USE FOR UNKNOWN INDICATION
     Route: 048
     Dates: end: 20070316
  4. DIAZEPAM [Suspect]
     Indication: DRUG USE FOR UNKNOWN INDICATION
     Route: 048
  5. OXCARBAZEPINE [Suspect]
     Indication: DRUG USE FOR UNKNOWN INDICATION
     Route: 048

REACTIONS (7)
  - ANISOCYTOSIS [None]
  - BONE MARROW MYELOGRAM ABNORMAL [None]
  - CONVULSION [None]
  - DRUG INEFFECTIVE [None]
  - ESSENTIAL THROMBOCYTHAEMIA [None]
  - LEUKOCYTOSIS [None]
  - PLATELET MORPHOLOGY ABNORMAL [None]
